FAERS Safety Report 6478081-3 (Version None)
Quarter: 2009Q4

REPORT INFORMATION
  Report Type: 
  Country: None (occurrence: None)
  Receive Date: 20091207
  Receipt Date: 20091202
  Transmission Date: 20100525
  Serious: Yes (Life-Threatening, Other)
  Sender: FDA-Public Use
  Company Number: GB-MERCK-0911GBR00071

PATIENT
  Age: 77 Year
  Sex: Female

DRUGS (7)
  1. MIDAMOR [Suspect]
     Indication: POLYURIA
     Route: 048
  2. FUROSEMIDE [Suspect]
     Indication: OEDEMA PERIPHERAL
     Route: 048
  3. VANCOMYCIN [Suspect]
     Indication: WOUND INFECTION
     Route: 042
  4. ATENOLOL [Concomitant]
     Indication: HYPERTENSION
     Route: 065
  5. BENDROFLUMETHIAZIDE [Concomitant]
     Indication: HYPERTENSION
     Route: 065
  6. RAMIPRIL [Concomitant]
     Indication: HYPERTENSION
     Route: 065
  7. SPIRONOLACTONE [Concomitant]
     Route: 065

REACTIONS (8)
  - CARDIAC ARREST [None]
  - DRUG INTERACTION [None]
  - HYPERKALAEMIA [None]
  - HYPOKALAEMIA [None]
  - HYPOMAGNESAEMIA [None]
  - OEDEMA PERIPHERAL [None]
  - PLEURAL EFFUSION [None]
  - VENTRICULAR TACHYCARDIA [None]
